FAERS Safety Report 26204175 (Version 1)
Quarter: 2025Q4

REPORT INFORMATION
  Report Type: Spontaneous
  Country: US (occurrence: US)
  Receive Date: 20251226
  Receipt Date: 20251226
  Transmission Date: 20260118
  Serious: Yes (Hospitalization)
  Sender: ANI
  Company Number: US-ANIPHARMA-2025-US-055262

PATIENT
  Sex: Male

DRUGS (13)
  1. CORTICOTROPIN [Suspect]
     Active Substance: CORTICOTROPIN
     Indication: Product used for unknown indication
     Dosage: 40 UNITS TWICE PER WEEK
  2. AZITHROMYCIN [Concomitant]
     Active Substance: AZITHROMYCIN
  3. WARFARIN SODIUM [Concomitant]
     Active Substance: WARFARIN SODIUM
  4. ULTOMIRIS [Concomitant]
     Active Substance: RAVULIZUMAB-CWVZ
  5. PREDNISONE [Concomitant]
     Active Substance: PREDNISONE
  6. TRAMADOL HCL [Concomitant]
     Active Substance: TRAMADOL HYDROCHLORIDE
  7. CALCITRIOL [Concomitant]
     Active Substance: CALCITRIOL
  8. ATORVASTATIN CALCIUM [Concomitant]
     Active Substance: ATORVASTATIN CALCIUM
  9. FOLIC ACID [Concomitant]
     Active Substance: FOLIC ACID
  10. TAMSULOSIN HYDROCHLORIDE [Concomitant]
     Active Substance: TAMSULOSIN HYDROCHLORIDE
  11. LEVOTHYROXINE SODIUM [Concomitant]
     Active Substance: LEVOTHYROXINE SODIUM
  12. PANTOPRAZOLE SODIUM [Concomitant]
     Active Substance: PANTOPRAZOLE SODIUM
  13. AMLODIPINE BESYLATE [Concomitant]
     Active Substance: AMLODIPINE BESYLATE

REACTIONS (1)
  - Pericardial effusion [Unknown]
